FAERS Safety Report 20040625 (Version 1)
Quarter: 2021Q4

REPORT INFORMATION
  Report Type: Spontaneous
  Country: US (occurrence: None)
  Receive Date: 20211107
  Receipt Date: 20211107
  Transmission Date: 20220303
  Serious: Yes (Other)
  Sender: FDA-Public Use
  Company Number: None

PATIENT
  Sex: Male
  Weight: 29.48 kg

DRUGS (1)
  1. MIRALAX [Suspect]
     Active Substance: POLYETHYLENE GLYCOL 3350
     Indication: Constipation
     Dosage: 1/2 CAPSULE DAILY BY MOUTH
     Dates: start: 20210627, end: 20210723

REACTIONS (3)
  - Tic [None]
  - Abdominal rigidity [None]
  - Eye disorder [None]

NARRATIVE: CASE EVENT DATE: 20210723
